FAERS Safety Report 5094958-8 (Version None)
Quarter: 2006Q3

REPORT INFORMATION
  Report Type: 
  Country: None (occurrence: None)
  Receive Date: 20060901
  Receipt Date: 20060823
  Transmission Date: 20061208
  Serious: Yes (Death)
  Sender: FDA-Public Use
  Company Number: US-JNJFOC-20060805680

PATIENT
  Sex: Male
  Weight: 158.76 kg

DRUGS (1)
  1. DURAGESIC-100 [Suspect]
     Indication: COMPLETED SUICIDE
     Route: 050

REACTIONS (2)
  - COMPLETED SUICIDE [None]
  - MULTIPLE DRUG OVERDOSE INTENTIONAL [None]
